FAERS Safety Report 24068170 (Version 4)
Quarter: 2024Q4

REPORT INFORMATION
  Report Type: Report from Study
  Country: CA (occurrence: CA)
  Receive Date: 20240710
  Receipt Date: 20241001
  Transmission Date: 20250115
  Serious: Yes (Hospitalization, Other)
  Sender: BOEHRINGER INGELHEIM
  Company Number: CA-BoehringerIngelheim-2024-BI-008120

PATIENT
  Age: 73 Year
  Sex: Male

DRUGS (2)
  1. OFEV [Suspect]
     Active Substance: NINTEDANIB
     Indication: Idiopathic pulmonary fibrosis
     Route: 048
     Dates: start: 20240313
  2. OFEV [Suspect]
     Active Substance: NINTEDANIB
     Route: 048
     Dates: start: 202404, end: 20240624

REACTIONS (18)
  - Post procedural haemorrhage [Not Recovered/Not Resolved]
  - Wound dehiscence [Not Recovered/Not Resolved]
  - Idiopathic pulmonary fibrosis [Unknown]
  - Postoperative wound infection [Unknown]
  - Internal haemorrhage [Unknown]
  - Wound [Unknown]
  - Haematemesis [Recovered/Resolved]
  - Haemoglobin decreased [Unknown]
  - Gastrooesophageal reflux disease [Recovering/Resolving]
  - Abdominal pain upper [Recovering/Resolving]
  - Abdominal distension [Recovering/Resolving]
  - Dysphonia [Not Recovered/Not Resolved]
  - Oropharyngeal pain [Not Recovered/Not Resolved]
  - Flatulence [Recovering/Resolving]
  - Dizziness [Recovering/Resolving]
  - Dry mouth [Not Recovered/Not Resolved]
  - Diarrhoea [Recovering/Resolving]
  - Haematemesis [Unknown]

NARRATIVE: CASE EVENT DATE: 20240622
